FAERS Safety Report 12549896 (Version 1)
Quarter: 2016Q3

REPORT INFORMATION
  Report Type: Spontaneous
  Country: FR (occurrence: FR)
  Receive Date: 20160712
  Receipt Date: 20160712
  Transmission Date: 20161109
  Serious: Yes (Hospitalization, Other)
  Sender: FDA-Public Use
  Company Number: FR-INDIVIOR LIMITED-INDV-091929-2016

PATIENT
  Age: 47 Year
  Sex: Male

DRUGS (5)
  1. SUBUTEX [Suspect]
     Active Substance: BUPRENORPHINE HYDROCHLORIDE
     Dosage: 2 MG, QD
     Route: 042
     Dates: start: 2005
  2. SUBUTEX [Suspect]
     Active Substance: BUPRENORPHINE HYDROCHLORIDE
     Indication: PRODUCT SUBSTITUTION
     Dosage: UNK
     Route: 065
     Dates: start: 1995
  3. COCAINE [Suspect]
     Active Substance: COCAINE
     Dosage: 2 TO 3 TIMES PER WEEK
     Route: 030
  4. COCAINE [Suspect]
     Active Substance: COCAINE
     Indication: PRODUCT USED FOR UNKNOWN INDICATION
     Dosage: UNK
     Route: 065
  5. CANNABIS [Suspect]
     Active Substance: CANNABIS SATIVA SUBSP. INDICA TOP
     Indication: PRODUCT USED FOR UNKNOWN INDICATION
     Dosage: 2 JOINTS PER WEEK
     Route: 065

REACTIONS (6)
  - Injection site abscess [Recovering/Resolving]
  - Drug dependence [Recovering/Resolving]
  - Brachial artery entrapment syndrome [Recovered/Resolved]
  - Muscle spasms [Unknown]
  - Intentional product use issue [Recovering/Resolving]
  - Skin wound [Recovering/Resolving]

NARRATIVE: CASE EVENT DATE: 2005
